FAERS Safety Report 11275233 (Version 1)
Quarter: 2015Q3

REPORT INFORMATION
  Report Type: Spontaneous
  Country: GB (occurrence: None)
  Receive Date: 20150714
  Receipt Date: 20150714
  Transmission Date: 20151125
  Serious: Yes (Other)
  Sender: FDA-Public Use
  Company Number: CL-640-2015

PATIENT
  Age: 25 Year
  Sex: Female

DRUGS (1)
  1. METRONIDAZOLE UNK [Suspect]
     Active Substance: METRONIDAZOLE
     Indication: INFECTION
     Dosage: 2000 MG TOTAL ORAL
     Route: 048
     Dates: start: 20150625, end: 20150625

REACTIONS (8)
  - Confusional state [None]
  - Euphoric mood [None]
  - Migraine [None]
  - Vision blurred [None]
  - Eye movement disorder [None]
  - Hypoaesthesia [None]
  - Photophobia [None]
  - Hyperhidrosis [None]

NARRATIVE: CASE EVENT DATE: 20150626
